FAERS Safety Report 8916764 (Version 4)
Quarter: 2012Q4

REPORT INFORMATION
  Report Type: 
  Country: US (occurrence: US)
  Receive Date: 20121120
  Receipt Date: 20121224
  Transmission Date: 20130627
  Serious: Yes (Hospitalization)
  Sender: FDA-Public Use
  Company Number: US-GILEAD-2012-0064824

PATIENT
  Age: 69 Year
  Sex: Male

DRUGS (2)
  1. LETAIRIS [Suspect]
     Indication: PULMONARY ARTERIAL HYPERTENSION
     Dosage: 5 mg, QD
     Route: 048
     Dates: start: 20121022, end: 20121101
  2. ADCIRCA [Concomitant]
     Dates: start: 20120725

REACTIONS (6)
  - Cerebral haemorrhage [Unknown]
  - Incoherent [Unknown]
  - Gait disturbance [Unknown]
  - Surgery [Unknown]
  - Cerebrovascular accident [Not Recovered/Not Resolved]
  - Unevaluable event [Not Recovered/Not Resolved]
